FAERS Safety Report 4280332-0 (Version None)
Quarter: 2004Q1

REPORT INFORMATION
  Report Type: 
  Country: None (occurrence: None)
  Receive Date: 20040126
  Receipt Date: 20040112
  Transmission Date: 20041129
  Serious: Yes (Other)
  Sender: FDA-Public Use
  Company Number: 04-008-0733

PATIENT
  Age: 44 Year
  Sex: Male

DRUGS (2)
  1. ETOMIDATE [Suspect]
     Indication: ANAESTHESIA
     Dosage: 14-16 MG
     Dates: start: 20031229
  2. ETOMIDATE [Suspect]
     Indication: ELECTROCONVULSIVE THERAPY
     Dosage: 14-16 MG
     Dates: start: 20031229

REACTIONS (1)
  - TONIC CLONIC MOVEMENTS [None]
